FAERS Safety Report 9134834 (Version 1)
Quarter: 2013Q1

REPORT INFORMATION
  Report Type: Report from Study
  Country: CA (occurrence: CA)
  Receive Date: 20130304
  Receipt Date: 20130304
  Transmission Date: 20140127
  Serious: Yes (Other)
  Sender: FDA-Public Use
  Company Number: CA-JNJFOC-20130216092

PATIENT
  Sex: Male
  Weight: 93 kg

DRUGS (2)
  1. REMICADE [Suspect]
     Indication: COLITIS ULCERATIVE
     Route: 042
     Dates: start: 20090819
  2. CIPRALEX [Concomitant]
     Route: 065

REACTIONS (1)
  - Axillary mass [Unknown]
